FAERS Safety Report 6246726-9 (Version None)
Quarter: 2009Q2

REPORT INFORMATION
  Report Type: 
  Country: None (occurrence: None)
  Receive Date: 20090626
  Receipt Date: 20090619
  Transmission Date: 20091009
  Serious: Yes (Hospitalization)
  Sender: FDA-Public Use
  Company Number: US-ASTRAZENECA-2009UW16162

PATIENT
  Age: 51 Year
  Sex: Female

DRUGS (2)
  1. SEROQUEL [Suspect]
     Route: 048
  2. URSO 250 [Concomitant]
     Indication: BILIARY CIRRHOSIS PRIMARY

REACTIONS (2)
  - HEPATIC ENZYME INCREASED [None]
  - PRURITUS [None]
